FAERS Safety Report 10786535 (Version 1)
Quarter: 2015Q1

REPORT INFORMATION
  Report Type: Spontaneous
  Country: US (occurrence: None)
  Receive Date: 20150210
  Receipt Date: 20150210
  Transmission Date: 20150721
  Serious: No
  Sender: FDA-Public Use
  Company Number: None

PATIENT
  Age: 44 Year
  Sex: Male
  Weight: 108.86 kg

DRUGS (1)
  1. MIRVASO [Suspect]
     Active Substance: BRIMONIDINE TARTRATE
     Indication: ROSACEA
     Dosage: APPLIED TO A SURFACE, USUALLY THE SKIN

REACTIONS (3)
  - Rebound effect [None]
  - Flushing [None]
  - Rosacea [None]

NARRATIVE: CASE EVENT DATE: 20150206
